FAERS Safety Report 10353053 (Version 1)
Quarter: 2014Q3

REPORT INFORMATION
  Report Type: Spontaneous
  Country: US (occurrence: US)
  Receive Date: 20140730
  Receipt Date: 20140730
  Transmission Date: 20150326
  Serious: No
  Sender: FDA-Public Use
  Company Number: US-ABBVIE-14P-163-1234265-00

PATIENT
  Age: 59 Year
  Sex: Female
  Weight: 79 kg

DRUGS (10)
  1. SYNTHROID [Suspect]
     Active Substance: LEVOTHYROXINE SODIUM
     Indication: HYPOTHYROIDISM
     Route: 048
     Dates: start: 201404
  2. SYNTHROID [Suspect]
     Active Substance: LEVOTHYROXINE SODIUM
     Indication: HYPOTHYROIDISM
     Route: 048
     Dates: start: 201404
  3. ATORVASTATIN [Concomitant]
     Active Substance: ATORVASTATIN
     Indication: BLOOD CHOLESTEROL INCREASED
  4. SYNTHROID [Suspect]
     Active Substance: LEVOTHYROXINE SODIUM
     Route: 048
     Dates: end: 201404
  5. SYNTHROID [Suspect]
     Active Substance: LEVOTHYROXINE SODIUM
  6. CHLOROGENIC ACID [Suspect]
     Active Substance: DIETARY SUPPLEMENT
     Indication: WEIGHT LOSS DIET
     Dates: start: 20140402
  7. DHEA [Concomitant]
     Active Substance: DEHYDROEPIANDROSTERONE-3-SULFATE SODIUM
     Indication: SUPPLEMENTATION THERAPY
  8. UNKNOWN TRANSDERMAL TESTOSTERONE [Concomitant]
     Indication: SUPPLEMENTATION THERAPY
     Route: 062
  9. ASPIRIN. [Concomitant]
     Active Substance: ASPIRIN
     Indication: CARDIAC DISORDER
  10. VIVELLE DOT [Concomitant]
     Active Substance: ESTRADIOL
     Indication: SUPPLEMENTATION THERAPY

REACTIONS (6)
  - Rash [Not Recovered/Not Resolved]
  - Onychoclasis [Not Recovered/Not Resolved]
  - Blood thyroid stimulating hormone increased [Not Recovered/Not Resolved]
  - Constipation [Not Recovered/Not Resolved]
  - Dry skin [Not Recovered/Not Resolved]
  - Asthenopia [Not Recovered/Not Resolved]

NARRATIVE: CASE EVENT DATE: 201401
